FAERS Safety Report 17615124 (Version 2)
Quarter: 2020Q2

REPORT INFORMATION
  Report Type: Report from Study
  Country: FR (occurrence: FR)
  Receive Date: 20200402
  Receipt Date: 20200408
  Transmission Date: 20200713
  Serious: Yes (Life-Threatening)
  Sender: FDA-Public Use
  Company Number: FR-ROCHE-2548452

PATIENT
  Age: 72 Year
  Sex: Male
  Weight: 68 kg

DRUGS (116)
  1. PLACEBO [Suspect]
     Active Substance: UNSPECIFIED INGREDIENT
     Indication: INFLUENZA
     Dosage: ON 27/JAN/2020 AT 16:15 THE PATIENT RECEIVED THE MOST RECENT  DOSE OF THE BLINDED BALOXAVIR MARBOXIL
     Route: 048
     Dates: start: 20200124
  2. VENLAFAXINE [Concomitant]
     Active Substance: VENLAFAXINE HYDROCHLORIDE
     Indication: ANXIETY
     Route: 048
     Dates: start: 20200208
  3. ALPRAZOLAM. [Concomitant]
     Active Substance: ALPRAZOLAM
     Indication: ANXIETY
     Dosage: PRN (AS NEEDED)
     Route: 048
     Dates: end: 20200123
  4. ISOSORBIDE. [Concomitant]
     Active Substance: ISOSORBIDE
     Indication: HYPERTENSION
     Dosage: PRN (AS NEEDED)
     Route: 042
     Dates: start: 20200126, end: 20200128
  5. GLUCOSE [Concomitant]
     Active Substance: DEXTROSE
     Indication: HYPERKALAEMIA
     Route: 042
     Dates: start: 20200124, end: 20200128
  6. AMIODARONE [Concomitant]
     Active Substance: AMIODARONE
     Indication: TACHYCARDIA
     Dosage: 4 AMPULE
     Route: 042
     Dates: start: 20200206, end: 20200207
  7. FLUTICASON [Concomitant]
     Active Substance: FLUTICASONE
     Indication: DYSPNOEA
     Dosage: 2 INHALATION
     Route: 050
     Dates: start: 20200218, end: 20200218
  8. KETAMINE [Concomitant]
     Active Substance: KETAMINE
     Indication: SEDATION
     Route: 042
     Dates: start: 20200130, end: 20200203
  9. RINGER LACTATED [Concomitant]
     Indication: PYREXIA
     Route: 042
     Dates: start: 20200130, end: 20200131
  10. RINGER LACTATED [Concomitant]
     Route: 042
     Dates: start: 20200131, end: 20200201
  11. AMLODIPINE [Concomitant]
     Active Substance: AMLODIPINE BESYLATE
     Route: 050
     Dates: start: 20200208
  12. IPRATROPIUM [Concomitant]
     Active Substance: IPRATROPIUM
     Indication: CHRONIC OBSTRUCTIVE PULMONARY DISEASE
     Route: 065
     Dates: start: 20200124, end: 20200214
  13. PHOCYTAN [Concomitant]
     Active Substance: .ALPHA.-GLUCOSE-1-PHOSPHATE
     Route: 042
     Dates: start: 20200126, end: 20200129
  14. PARACETAMOL [Concomitant]
     Active Substance: ACETAMINOPHEN
     Indication: PYREXIA
     Route: 048
     Dates: end: 20200123
  15. LATANOPROST. [Concomitant]
     Active Substance: LATANOPROST
     Route: 050
     Dates: start: 20200210
  16. NEFOPAM [Concomitant]
     Active Substance: NEFOPAM
     Indication: ANALGESIC THERAPY
     Route: 042
     Dates: start: 20200130, end: 20200130
  17. SMOFKABIVEN [Concomitant]
     Active Substance: AMINO ACIDS\DEXTROSE\ELECTROLYTES NOS\SOYBEAN OIL
     Indication: PARENTERAL NUTRITION
     Route: 042
     Dates: start: 20200130, end: 20200131
  18. ACIDE ASCORBIQUE [Concomitant]
     Active Substance: ASCORBIC ACID
     Route: 042
     Dates: start: 20200131
  19. ACIDE ASCORBIQUE [Concomitant]
     Active Substance: ASCORBIC ACID
     Dosage: AMPULE
     Route: 042
     Dates: start: 20200216, end: 20200217
  20. NOREPINEPHRINE. [Concomitant]
     Active Substance: NOREPINEPHRINE
     Indication: HYPOTENSION
     Dosage: OTHER
     Route: 042
     Dates: start: 20200131, end: 20200202
  21. PHOSPHORUS [Concomitant]
     Active Substance: PHOSPHORUS
     Dosage: AMPULE
     Route: 042
     Dates: start: 20200201, end: 20200202
  22. ERYTHROMYCIN. [Concomitant]
     Active Substance: ERYTHROMYCIN
     Indication: INTESTINAL OBSTRUCTION
     Route: 042
     Dates: start: 20200202, end: 20200221
  23. METOCLOPRAMIDE. [Concomitant]
     Active Substance: METOCLOPRAMIDE
     Indication: INTESTINAL OBSTRUCTION
     Route: 042
     Dates: start: 20200203, end: 20200206
  24. FUROSEMIDE. [Concomitant]
     Active Substance: FUROSEMIDE
     Route: 042
     Dates: start: 20200214, end: 20200214
  25. BILASTINE [Concomitant]
     Active Substance: BILASTINE
     Indication: HYPERSENSITIVITY
     Route: 048
     Dates: start: 20200123
  26. BEVITINE [Concomitant]
     Active Substance: THIAMINE HYDROCHLORIDE
     Route: 042
     Dates: start: 20200124, end: 20200218
  27. FENTANYL. [Concomitant]
     Active Substance: FENTANYL
     Indication: SEDATION
  28. GLUCOSE [Concomitant]
     Active Substance: DEXTROSE
     Route: 042
     Dates: start: 20200128, end: 20200129
  29. GLUCOSE [Concomitant]
     Active Substance: DEXTROSE
     Route: 042
     Dates: start: 20200206, end: 20200207
  30. FLUCONAZOLE. [Concomitant]
     Active Substance: FLUCONAZOLE
     Indication: INTESTINAL OBSTRUCTION
     Route: 042
     Dates: start: 20200129, end: 20200129
  31. ATRACURIUM [Concomitant]
     Active Substance: ATRACURIUM
     Route: 042
     Dates: start: 20200129, end: 20200129
  32. AMIODARONE [Concomitant]
     Active Substance: AMIODARONE
     Route: 050
     Dates: start: 20200206, end: 20200216
  33. SUXAMETHONIUM [Concomitant]
     Active Substance: SUCCINYLCHOLINE
     Route: 042
     Dates: start: 20200208, end: 20200208
  34. PHYTOMENADIONE [Concomitant]
     Active Substance: PHYTONADIONE
     Dosage: 1 AMPULE
     Route: 042
     Dates: start: 20200216, end: 20200216
  35. POTASSIUM CANRENOATE [Concomitant]
     Active Substance: CANRENOATE POTASSIUM
     Indication: OEDEMA
     Route: 042
     Dates: start: 20200211, end: 20200215
  36. LANSOPRAZOLE. [Concomitant]
     Active Substance: LANSOPRAZOLE
     Route: 050
     Dates: start: 20200215
  37. SALBUTAMOL [Concomitant]
     Active Substance: ALBUTEROL
     Indication: DYSPNOEA
     Route: 050
     Dates: start: 20200123, end: 20200225
  38. SUFENTANIL [Concomitant]
     Active Substance: SUFENTANIL
     Indication: ANALGESIC THERAPY
     Route: 042
     Dates: start: 20200123, end: 20200124
  39. SUFENTANIL [Concomitant]
     Active Substance: SUFENTANIL
     Indication: SEDATION
     Route: 042
     Dates: start: 20200129, end: 20200130
  40. RINGER LACTATED [Concomitant]
     Route: 042
     Dates: start: 20200208, end: 20200208
  41. MORPHINE [Concomitant]
     Active Substance: MORPHINE
     Indication: ANALGESIC THERAPY
     Route: 042
     Dates: start: 20200208, end: 20200210
  42. GABAPENTINE [Concomitant]
     Active Substance: GABAPENTIN
     Route: 050
     Dates: start: 20200203
  43. DIAZEPAM. [Concomitant]
     Active Substance: DIAZEPAM
     Route: 045
     Dates: start: 20200126, end: 20200127
  44. DIAZEPAM. [Concomitant]
     Active Substance: DIAZEPAM
     Route: 045
     Dates: start: 20200126, end: 20200126
  45. CODEINE [Concomitant]
     Active Substance: CODEINE
     Indication: PRODUCT USED FOR UNKNOWN INDICATION
     Route: 048
     Dates: end: 20200123
  46. PARACETAMOL [Concomitant]
     Active Substance: ACETAMINOPHEN
     Dosage: AS NEEDED INTRAVENOUS
     Route: 042
     Dates: start: 20200208, end: 20200211
  47. GLUCOSE [Concomitant]
     Active Substance: DEXTROSE
     Indication: PARENTERAL NUTRITION
     Route: 042
     Dates: start: 20200129, end: 20200129
  48. NEOSTIGMINE. [Concomitant]
     Active Substance: NEOSTIGMINE METHYLSULFATE
     Indication: INTESTINAL OBSTRUCTION
     Dosage: OTHER
     Route: 042
     Dates: start: 20200131, end: 20200201
  49. LIDOCAINE. [Concomitant]
     Active Substance: LIDOCAINE
     Indication: ANALGESIC THERAPY
     Dosage: OTHER
     Route: 042
     Dates: start: 20200203, end: 20200206
  50. FUROSEMIDE. [Concomitant]
     Active Substance: FUROSEMIDE
     Indication: OEDEMA
     Route: 042
     Dates: start: 20200203, end: 20200203
  51. MACROGOL [Concomitant]
     Active Substance: POLYETHYLENE GLYCOLS
     Dosage: OTHER
     Route: 050
     Dates: start: 20200208
  52. PHLOROGLUCINOL [Concomitant]
     Active Substance: PHLOROGLUCINOL
     Indication: INTESTINAL OBSTRUCTION
     Route: 042
     Dates: start: 20200128, end: 20200129
  53. CHLORURE DE SODIUM [Concomitant]
     Active Substance: SODIUM CHLORIDE
     Route: 042
     Dates: start: 20200123, end: 20200124
  54. CHLORURE DE SODIUM [Concomitant]
     Active Substance: SODIUM CHLORIDE
     Dosage: AMPULE
     Route: 042
     Dates: start: 20200201, end: 20200210
  55. CALCIUM FOLINATE [Concomitant]
     Active Substance: LEUCOVORIN CALCIUM
     Route: 042
     Dates: start: 20200204, end: 20200204
  56. VILANTEROL [Concomitant]
     Active Substance: VILANTEROL TRIFENATATE
     Route: 065
     Dates: start: 20200123
  57. MIDAZOLAM. [Concomitant]
     Active Substance: MIDAZOLAM
     Route: 042
     Dates: start: 20200127, end: 20200130
  58. INSULIN [Concomitant]
     Active Substance: INSULIN NOS
     Indication: HYPERKALAEMIA
     Dosage: PRN (AS NEEDED)
     Route: 058
     Dates: start: 20200130, end: 20200130
  59. NICOTINE. [Concomitant]
     Active Substance: NICOTINE
     Indication: TOBACCO ABUSE
     Route: 062
     Dates: start: 20200125
  60. NICOTINE. [Concomitant]
     Active Substance: NICOTINE
     Route: 062
     Dates: start: 20200214
  61. ETOMIDATE. [Concomitant]
     Active Substance: ETOMIDATE
     Indication: SEDATION
     Dosage: PRN (AS NEEDED)
     Route: 042
     Dates: start: 20200127, end: 20200127
  62. ROCURONIUM [Concomitant]
     Active Substance: ROCURONIUM BROMIDE
     Dosage: PRN (AS NEEDED)
     Route: 042
     Dates: start: 20200127, end: 20200127
  63. PROPOFOL. [Concomitant]
     Active Substance: PROPOFOL
     Dosage: 8 OTHER
     Route: 042
     Dates: start: 20200131, end: 20200205
  64. GLUCOSE [Concomitant]
     Active Substance: DEXTROSE
     Dosage: PRN (AS NEEDED)
     Route: 042
     Dates: start: 20200130, end: 20200130
  65. CLONIDINE. [Concomitant]
     Active Substance: CLONIDINE
     Indication: SEDATION
     Dosage: OTHER
     Route: 042
     Dates: start: 20200130, end: 20200206
  66. OLIMEL [Concomitant]
     Active Substance: AMINO ACIDS\DEXTROSE\SOYBEAN OIL
     Indication: PARENTERAL NUTRITION
     Dosage: OTHER
     Route: 042
     Dates: start: 20200131, end: 20200217
  67. NICOTINAMIDE [Concomitant]
     Active Substance: NIACINAMIDE
     Dosage: AMPULE
     Route: 042
     Dates: start: 20200130, end: 20200218
  68. ATROPINE. [Concomitant]
     Active Substance: ATROPINE
     Indication: BRADYCARDIA
     Route: 042
     Dates: start: 20200201, end: 20200201
  69. DOMPERIDONE [Concomitant]
     Active Substance: DOMPERIDONE
     Indication: IMPAIRED GASTRIC EMPTYING
     Route: 050
     Dates: start: 20200211, end: 20200216
  70. AMOXICILLIN/CLAVULANIC ACID [Concomitant]
     Active Substance: AMOXICILLIN\CLAVULANIC ACID
     Indication: PNEUMONIA
     Route: 042
     Dates: start: 20200124, end: 20200129
  71. RINGER LACTATED [Concomitant]
     Route: 042
     Dates: start: 20200211, end: 20200215
  72. OSELTAMIVIR [Suspect]
     Active Substance: OSELTAMIVIR
     Indication: INFLUENZA
     Dosage: ON 29/JAN/2020 AT 8.10 THE PATIENT RECEIVED THE MOST RECENT DOSE OF THE OSELTAMIVIR 75 MG TWICE A DA
     Route: 048
     Dates: start: 20200124
  73. GABAPENTINE [Concomitant]
     Active Substance: GABAPENTIN
     Indication: PAIN IN EXTREMITY
     Route: 050
     Dates: start: 20200131, end: 20200203
  74. FLUTICASONE. [Concomitant]
     Active Substance: FLUTICASONE
     Indication: CHRONIC OBSTRUCTIVE PULMONARY DISEASE
     Route: 065
     Dates: start: 20200123
  75. CISATRACURIUM. [Concomitant]
     Active Substance: CISATRACURIUM
     Dosage: PRN (AS NEEDED)
     Route: 042
     Dates: start: 20200123, end: 20200123
  76. CEFTRIAXONE. [Concomitant]
     Active Substance: CEFTRIAXONE
     Indication: PNEUMONIA
     Route: 042
     Dates: start: 20200124, end: 20200124
  77. ALPRAZOLAM. [Concomitant]
     Active Substance: ALPRAZOLAM
     Route: 050
     Dates: start: 20200131, end: 20200131
  78. INSULIN [Concomitant]
     Active Substance: INSULIN NOS
     Indication: HYPERGLYCAEMIA
     Dosage: PRN (AS NEEDED)
     Route: 058
     Dates: start: 20200124, end: 20200124
  79. DIAZEPAM. [Concomitant]
     Active Substance: DIAZEPAM
     Indication: ANXIETY
     Route: 045
     Dates: start: 20200124, end: 20200125
  80. PROPOFOL. [Concomitant]
     Active Substance: PROPOFOL
     Indication: SEDATION
     Route: 042
     Dates: start: 20200130, end: 20200130
  81. PROPOFOL. [Concomitant]
     Active Substance: PROPOFOL
     Route: 042
     Dates: start: 20200208, end: 20200209
  82. ALBUMINE [Concomitant]
     Active Substance: ALBUMIN HUMAN
     Indication: HYPOTENSION
     Route: 042
     Dates: start: 20200130, end: 20200131
  83. GLUCOSE [Concomitant]
     Active Substance: DEXTROSE
     Route: 042
     Dates: start: 20200130, end: 20200130
  84. LACTOBACILLUS [Concomitant]
     Active Substance: LACTOBACILLUS ACIDOPHILUS
     Route: 050
     Dates: start: 20200130, end: 20200208
  85. OXAZEPAM. [Concomitant]
     Active Substance: OXAZEPAM
     Indication: SEDATION
     Route: 050
     Dates: start: 20200203, end: 20200207
  86. FUROSEMIDE. [Concomitant]
     Active Substance: FUROSEMIDE
     Route: 042
     Dates: start: 20200207, end: 20200211
  87. ROTIGOTINE [Concomitant]
     Active Substance: ROTIGOTINE
     Route: 050
     Dates: start: 20200212
  88. URAPIDIL [Concomitant]
     Active Substance: URAPIDIL
     Dosage: 5 OTHER
     Route: 042
     Dates: start: 20200214, end: 20200214
  89. SALBUTAMOL [Concomitant]
     Active Substance: ALBUTEROL
     Route: 042
     Dates: start: 20200123, end: 20200124
  90. LEVODOPA [Concomitant]
     Active Substance: LEVODOPA
     Indication: PARKINSONISM
     Route: 048
  91. FLUTICASONE. [Concomitant]
     Active Substance: FLUTICASONE
     Dosage: INHALATION
     Route: 050
     Dates: start: 20200218, end: 20200218
  92. MIDAZOLAM. [Concomitant]
     Active Substance: MIDAZOLAM
     Indication: SEDATION
     Dosage: PRN (AS NEEDED)
     Route: 042
     Dates: start: 20200123, end: 20200124
  93. SPIRAMYCINE [Concomitant]
     Active Substance: SPIRAMYCIN
     Indication: PNEUMONIA
     Route: 042
     Dates: start: 20200124, end: 20200124
  94. PYRIDOXINE [Concomitant]
     Active Substance: PYRIDOXINE
     Route: 042
     Dates: start: 20200124, end: 20200218
  95. ENOXAPARIN [Concomitant]
     Active Substance: ENOXAPARIN
     Route: 058
     Dates: start: 20200130
  96. NEFOPAM [Concomitant]
     Active Substance: NEFOPAM
     Indication: PAIN
     Route: 050
     Dates: start: 20200205, end: 20200206
  97. PANTOPRAZOLE [Concomitant]
     Active Substance: PANTOPRAZOLE
     Indication: INTESTINAL OBSTRUCTION
     Route: 042
     Dates: start: 20200128, end: 20200215
  98. FUROSEMIDE. [Concomitant]
     Active Substance: FUROSEMIDE
     Route: 050
     Dates: start: 20200217
  99. KETAMINE [Concomitant]
     Active Substance: KETAMINE
     Indication: BRONCHOSPASM
     Route: 042
     Dates: start: 20200208, end: 20200208
  100. NUTRYELT [Concomitant]
     Active Substance: IRON\MINERALS\POTASSIUM IOD\SODIUM FLUORIDE\SODIUM MOLYBDATE\SODIUM SELENITE\ZINC
     Dosage: AMPULE
     Route: 042
     Dates: start: 20200130, end: 20200218
  101. CALCIUM FOLINATE [Concomitant]
     Active Substance: LEUCOVORIN CALCIUM
     Route: 042
     Dates: start: 20200215, end: 20200216
  102. AMLODIPINE [Concomitant]
     Active Substance: AMLODIPINE BESYLATE
     Indication: HYPERTENSION
     Route: 048
     Dates: start: 20200123
  103. METHYLPREDNISOLONE. [Concomitant]
     Active Substance: METHYLPREDNISOLONE
  104. CEFTRIAXONE. [Concomitant]
     Active Substance: CEFTRIAXONE
     Indication: INTESTINAL OBSTRUCTION
     Route: 042
     Dates: start: 20200130, end: 20200203
  105. CEFTRIAXONE. [Concomitant]
     Active Substance: CEFTRIAXONE
     Route: 042
     Dates: start: 20200129, end: 20200129
  106. FENTANYL. [Concomitant]
     Active Substance: FENTANYL
     Indication: ANALGESIC THERAPY
     Route: 042
     Dates: start: 20200124, end: 20200124
  107. ENOXAPARIN [Concomitant]
     Active Substance: ENOXAPARIN
     Route: 058
     Dates: start: 20200124
  108. LATANOPROST. [Concomitant]
     Active Substance: LATANOPROST
     Route: 047
     Dates: end: 20200122
  109. NEFOPAM [Concomitant]
     Active Substance: NEFOPAM
     Indication: SEDATION
     Route: 042
     Dates: start: 20200130, end: 20200206
  110. METRONIDAZOLE. [Concomitant]
     Active Substance: METRONIDAZOLE
     Indication: INTESTINAL OBSTRUCTION
     Route: 042
     Dates: start: 20200129, end: 20200201
  111. NOREPINEPHRINE. [Concomitant]
     Active Substance: NOREPINEPHRINE
     Indication: SEDATION
     Dosage: OTHER
     Route: 042
     Dates: start: 20200129, end: 20200129
  112. HALOPERIDOL. [Concomitant]
     Active Substance: HALOPERIDOL
     Indication: AGITATION
     Route: 050
     Dates: start: 20200202, end: 20200204
  113. ALFUZOSINE [ALFUZOSIN] [Concomitant]
     Active Substance: ALFUZOSIN HYDROCHLORIDE
     Route: 050
     Dates: start: 20200215, end: 20200217
  114. POTASSIUM [Concomitant]
     Active Substance: POTASSIUM
     Dosage: 2 TBSP (TABLESPOON DOSING UNIT)
     Route: 050
     Dates: start: 20200215
  115. CHLORURE DE SODIUM [Concomitant]
     Active Substance: SODIUM CHLORIDE
     Dosage: FLUID RESSUSCITATION FOR HYPOTENSION POST?SEDATION
     Route: 042
     Dates: start: 20200129, end: 20200130
  116. CHLORURE DE SODIUM [Concomitant]
     Active Substance: SODIUM CHLORIDE
     Route: 050
     Dates: start: 20200217, end: 20200226

REACTIONS (2)
  - Pneumonia [Recovered/Resolved]
  - Acute respiratory failure [Recovered/Resolved]

NARRATIVE: CASE EVENT DATE: 20200208
